FAERS Safety Report 6570832-2 (Version None)
Quarter: 2010Q1

REPORT INFORMATION
  Report Type: 
  Country: None (occurrence: None)
  Receive Date: 20100204
  Receipt Date: 20100129
  Transmission Date: 20100710
  Serious: Yes (Hospitalization)
  Sender: FDA-Public Use
  Company Number: FR-ROXANE LABORATORIES, INC.-2010-RO-00112RO

PATIENT
  Age: 70 Year
  Sex: Female

DRUGS (7)
  1. LAMOTRIGINE [Suspect]
     Indication: PETIT MAL EPILEPSY
     Dosage: 25 MG
  2. LAMOTRIGINE [Suspect]
     Dosage: 50 MG
  3. LEVETIRACETAM [Suspect]
     Indication: GRAND MAL CONVULSION
     Dosage: 1000 MG
  4. DIPHENYLHYDANTOIN [Suspect]
     Indication: GRAND MAL CONVULSION
     Dosage: 300 MG
  5. PHENOBARBITAL TAB [Suspect]
     Indication: GRAND MAL CONVULSION
     Dosage: 200 MG
  6. PARACETAMOL [Suspect]
     Indication: PYREXIA
     Dosage: 3 G
  7. CLONAZEPAM [Suspect]
     Indication: GRAND MAL CONVULSION
     Dosage: 4 MG

REACTIONS (2)
  - DRUG RASH WITH EOSINOPHILIA AND SYSTEMIC SYMPTOMS [None]
  - PANCREATITIS [None]
